FAERS Safety Report 4823758-6 (Version None)
Quarter: 2005Q4

REPORT INFORMATION
  Report Type: 
  Country: None (occurrence: None)
  Receive Date: 20051107
  Receipt Date: 20051031
  Transmission Date: 20060501
  Serious: Yes (Other)
  Sender: FDA-Public Use
  Company Number: 2005149945

PATIENT
  Age: 50 Year
  Sex: Female
  Weight: 78 kg

DRUGS (2)
  1. LIPITOR [Suspect]
     Indication: CEREBROVASCULAR ACCIDENT
     Dosage: 10 MG ORAL
     Route: 048
     Dates: start: 20050929, end: 20051017
  2. BETAHISTINE [Concomitant]

REACTIONS (2)
  - HYPERACUSIS [None]
  - TINNITUS [None]
